FAERS Safety Report 19817355 (Version 6)
Quarter: 2023Q2

REPORT INFORMATION
  Report Type: Spontaneous
  Country: US (occurrence: US)
  Receive Date: 20210910
  Receipt Date: 20230406
  Transmission Date: 20230721
  Serious: No
  Sender: FDA-Public Use
  Company Number: US-PFIZER INC-202101037923

PATIENT
  Age: 63 Year
  Sex: Female
  Weight: 122.47 kg

DRUGS (1)
  1. XELJANZ [Suspect]
     Active Substance: TOFACITINIB CITRATE
     Indication: Rheumatoid arthritis
     Dosage: 5 MG, 2X/DAY
     Route: 048
     Dates: start: 2015

REACTIONS (7)
  - Dyspnoea [Unknown]
  - Therapeutic response unexpected [Unknown]
  - Inflammation [Unknown]
  - Hypertension [Unknown]
  - Blood glucose increased [Unknown]
  - Intentional product misuse [Unknown]
  - Vitamin D decreased [Unknown]
